FAERS Safety Report 5394574-4 (Version None)
Quarter: 2007Q3

REPORT INFORMATION
  Report Type: 
  Country: None (occurrence: None)
  Receive Date: 20070723
  Receipt Date: 20070709
  Transmission Date: 20080115
  Serious: Yes (Hospitalization, Other)
  Sender: FDA-Public Use
  Company Number: US-SHR-US-2007-023123

PATIENT
  Age: 67 Year
  Sex: Male
  Weight: 76 kg

DRUGS (9)
  1. LEUKINE [Suspect]
     Indication: COLONY STIMULATING FACTOR THERAPY
     Dosage: 490 A?G,1X/DAYX14D AFTER CHEMO
     Route: 058
     Dates: start: 20070511, end: 20070612
  2. PROVIGIL [Concomitant]
     Dosage: 200 MG, 1X/DAY
     Route: 048
  3. SINGULAIR [Concomitant]
     Dosage: 10 MG, 1X/DAY
     Route: 048
  4. PROTONIX [Concomitant]
     Dosage: 40 MG, 1X/DAY
     Route: 048
  5. CARDURA                                 /JOR/ [Concomitant]
     Dosage: 4 MG, 1X/DAY
     Route: 048
  6. CORDARONE [Concomitant]
     Dosage: 200 MG, 1X/DAY
     Route: 048
  7. LORTAB [Concomitant]
     Dosage: 10/500MG
     Route: 048
  8. CARBOPLATIN [Concomitant]
  9. ETOPOSIDE [Concomitant]

REACTIONS (6)
  - ASTHENIA [None]
  - CONFUSIONAL STATE [None]
  - DYSPHASIA [None]
  - LOSS OF CONSCIOUSNESS [None]
  - PARTIAL SEIZURES [None]
  - PERSONALITY CHANGE [None]
